FAERS Safety Report 9603680 (Version 3)
Quarter: 2013Q4

REPORT INFORMATION
  Report Type: Report from Study
  Country: BR (occurrence: BR)
  Receive Date: 20131007
  Receipt Date: 20131024
  Transmission Date: 20140711
  Serious: Yes (Death, Life-Threatening, Hospitalization)
  Sender: FDA-Public Use
  Company Number: BR-ROCHE-1228858

PATIENT
  Age: 57 Year
  Sex: Female
  Weight: 74 kg

DRUGS (4)
  1. MABTHERA [Suspect]
     Indication: GRANULOMATOSIS WITH POLYANGIITIS
     Dosage: HER LAST RITUXIMAB INFUSION ON 08/JUL/2013
     Route: 065
     Dates: start: 20130502
  2. MABTHERA [Suspect]
     Indication: OFF LABEL USE
  3. OMEPRAZOLE [Concomitant]
  4. ACETAMINOPHEN [Concomitant]

REACTIONS (5)
  - Cerebrovascular accident [Fatal]
  - Urinary tract infection [Recovered/Resolved]
  - Lung infection [Unknown]
  - Tremor [Unknown]
  - Pyrexia [Recovered/Resolved]
